FAERS Safety Report 9876361 (Version 2)
Quarter: 2014Q1

REPORT INFORMATION
  Report Type: Other
  Country: US (occurrence: US)
  Receive Date: 20140206
  Receipt Date: 20140206
  Transmission Date: 20141002
  Serious: No
  Sender: FDA-Public Use
  Company Number: US-ACORDA-ACO_35513_2013

PATIENT
  Sex: Female

DRUGS (2)
  1. AMPYRA [Suspect]
     Indication: GAIT DISTURBANCE
     Dosage: 10 MG, UNK
     Route: 065
     Dates: start: 201012
  2. AMPYRA [Suspect]
     Indication: BALANCE DISORDER
     Dosage: 10 MG, UNK
     Route: 065

REACTIONS (4)
  - Mobility decreased [Recovered/Resolved]
  - Fatigue [Recovered/Resolved]
  - Activities of daily living impaired [Recovered/Resolved]
  - Balance disorder [Recovered/Resolved]
